FAERS Safety Report 8461544-9 (Version None)
Quarter: 2012Q2

REPORT INFORMATION
  Report Type: 
  Country: None (occurrence: None)
  Receive Date: 20120625
  Receipt Date: 20120618
  Transmission Date: 20120825
  Serious: Yes (Hospitalization)
  Sender: FDA-Public Use
  Company Number: FR-B.I. PHARMACEUTICALS,INC./RIDGEFIELD-2012-FF-00031FF

PATIENT
  Sex: Female

DRUGS (6)
  1. MICARDIS [Suspect]
     Dosage: 40 MG
     Route: 048
     Dates: end: 20111102
  2. SPIRIVA [Concomitant]
  3. ZOLPIDEM [Concomitant]
  4. TRANSIPEG [Concomitant]
  5. MICARDIS [Suspect]
     Dosage: 40 MG
     Route: 048
     Dates: start: 20111107
  6. PRAVASTATIN SODIUM [Concomitant]

REACTIONS (4)
  - MALAISE [None]
  - CONFUSIONAL STATE [None]
  - HYPONATRAEMIA [None]
  - VOMITING [None]
